FAERS Safety Report 20437040 (Version 3)
Quarter: 2022Q1

REPORT INFORMATION
  Report Type: Spontaneous
  Country: BR (occurrence: BR)
  Receive Date: 20220207
  Receipt Date: 20220316
  Transmission Date: 20220424
  Serious: Yes (Other)
  Sender: FDA-Public Use
  Company Number: BR-CELLTRION INC.-2022BR001200

PATIENT

DRUGS (6)
  1. INFLIXIMAB [Suspect]
     Active Substance: INFLIXIMAB
     Indication: Behcet^s syndrome
     Dosage: 3 AMPOLES 100ML EVERY 7 WEEKS (STARTED ABOUT 7 YEARS AGO; LAST DATE OF ADMINISTRATION: 31 JAN 2022)
     Route: 042
     Dates: start: 20211124
  2. INFLIXIMAB [Suspect]
     Active Substance: INFLIXIMAB
     Dosage: 3 AMPOLES 100ML EVERY 7 WEEKS (STARTED ABOUT 7 YEARS AGO)
     Route: 042
     Dates: start: 20220131
  3. DOMPERIDONE [Concomitant]
     Active Substance: DOMPERIDONE
     Indication: Dyspepsia
     Dosage: 10 MG, 3 TABLETS A DAY (STARTED ABOUT 3 YEARS AGO)
     Route: 048
  4. VITAMIN D NOS [Concomitant]
     Active Substance: VITAMIN D NOS
     Indication: Vitamin supplementation
     Dosage: 1 TABLET A WEEK (STARTED ABOUT 3 YEARS AGO)
     Route: 048
  5. BILASTINE [Concomitant]
     Active Substance: BILASTINE
     Indication: Rhinitis allergic
  6. FLUTICASONE FUROATE [Concomitant]
     Active Substance: FLUTICASONE FUROATE
     Indication: Rhinitis allergic

REACTIONS (8)
  - Anaphylactic shock [Recovered/Resolved]
  - Rhinitis allergic [Unknown]
  - Feeling abnormal [Recovered/Resolved]
  - Folliculitis [Unknown]
  - Product administration error [Unknown]
  - Treatment delayed [Unknown]
  - Contraindicated product administered [Unknown]
  - Off label use [Unknown]

NARRATIVE: CASE EVENT DATE: 20211001
